FAERS Safety Report 8607319-9 (Version None)
Quarter: 2012Q3

REPORT INFORMATION
  Report Type: 
  Country: None (occurrence: None)
  Receive Date: 20120808
  Receipt Date: 20120723
  Transmission Date: 20120928
  Serious: Yes (Hospitalization, Other)
  Sender: FDA-Public Use
  Company Number: DSA_55304_2012

PATIENT
  Age: 20 Year
  Sex: Male

DRUGS (1)
  1. BENZACLIN [Suspect]
     Indication: ACNE
     Dosage: DF
     Dates: start: 20070101

REACTIONS (15)
  - GASTROINTESTINAL HAEMORRHAGE [None]
  - COLITIS ULCERATIVE [None]
  - LARGE INTESTINAL ULCER [None]
  - ODYNOPHAGIA [None]
  - LOSS OF CONSCIOUSNESS [None]
  - OESOPHAGEAL ULCER [None]
  - HAEMOGLOBIN DECREASED [None]
  - ANAEMIA [None]
  - VOLVULUS OF SMALL BOWEL [None]
  - HYPERHIDROSIS [None]
  - SMALL INTESTINAL OBSTRUCTION [None]
  - COUGH [None]
  - LEUKOCYTOSIS [None]
  - ABDOMINAL HERNIA [None]
  - HEART RATE INCREASED [None]
